FAERS Safety Report 4726789-X (Version None)
Quarter: 2005Q3

REPORT INFORMATION
  Report Type: 
  Country: None (occurrence: None)
  Receive Date: 20050725
  Receipt Date: 20050426
  Transmission Date: 20060218
  Serious: No
  Sender: FDA-Public Use
  Company Number: USA050496542

PATIENT
  Age: 19 Year
  Sex: Male

DRUGS (1)
  1. STRATTERA [Suspect]
     Dosage: 20 MG DAY
     Dates: start: 20050302

REACTIONS (1)
  - SUNBURN [None]
